FAERS Safety Report 7355058-7 (Version None)
Quarter: 2011Q1

REPORT INFORMATION
  Report Type: 
  Country: None (occurrence: None)
  Receive Date: 20110316
  Receipt Date: 20110303
  Transmission Date: 20110831
  Serious: Yes (Other)
  Sender: FDA-Public Use
  Company Number: FR-SANOFI-AVENTIS-2011SA014431

PATIENT
  Age: 70 Year
  Sex: Male

DRUGS (4)
  1. LASIX [Concomitant]
     Route: 065
  2. CARDENSIEL [Concomitant]
     Route: 048
  3. ESIDRIX [Concomitant]
     Route: 048
  4. MULTAQ [Suspect]
     Indication: ATRIAL FLUTTER
     Route: 048

REACTIONS (5)
  - CARDIAC FAILURE [None]
  - ASCITES [None]
  - DYSPNOEA [None]
  - OEDEMA [None]
  - RALES [None]
